FAERS Safety Report 18707725 (Version 1)
Quarter: 2021Q1

REPORT INFORMATION
  Report Type: Spontaneous
  Country: US (occurrence: US)
  Receive Date: 20210106
  Receipt Date: 20210106
  Transmission Date: 20210419
  Serious: Yes (Disabling, Other)
  Sender: FDA-Public Use
  Company Number: US-TEVA-2020-US-1865146

PATIENT
  Age: 53 Year
  Sex: Male

DRUGS (5)
  1. COTRIMOXAZOLE [Suspect]
     Active Substance: SULFAMETHOXAZOLE\TRIMETHOPRIM
     Indication: MYCOBACTERIAL PERITONITIS
     Route: 065
  2. MOXIFLOXACIN. [Concomitant]
     Active Substance: MOXIFLOXACIN
     Indication: MYCOBACTERIAL PERITONITIS
     Dosage: 400 MILLIGRAM DAILY;
     Route: 065
  3. LINEZOLID. [Concomitant]
     Active Substance: LINEZOLID
     Indication: MYCOBACTERIAL PERITONITIS
     Dosage: 600 MILLIGRAM DAILY;
     Route: 065
  4. AMIKACIN. [Suspect]
     Active Substance: AMIKACIN
     Indication: MYCOBACTERIAL PERITONITIS
     Dosage: 7.5 MG/KG THRICE WEEKLY
     Route: 042
  5. DOXYCYCLINE. [Concomitant]
     Active Substance: DOXYCYCLINE
     Indication: MYCOBACTERIAL PERITONITIS
     Dosage: 200 MILLIGRAM DAILY;
     Route: 065

REACTIONS (3)
  - Leukopenia [Recovering/Resolving]
  - Hypoacusis [Unknown]
  - Ototoxicity [Unknown]
